FAERS Safety Report 15705152 (Version 1)
Quarter: 2018Q4

REPORT INFORMATION
  Report Type: Spontaneous
  Country: JP (occurrence: JP)
  Receive Date: 20181210
  Receipt Date: 20181210
  Transmission Date: 20190205
  Serious: Yes (Other)
  Sender: FDA-Public Use
  Company Number: JP-PFIZER INC-2018498300

PATIENT
  Age: 61 Year
  Sex: Male
  Weight: 60.1 kg

DRUGS (9)
  1. DEPAKENE [Concomitant]
     Active Substance: VALPROIC ACID
  2. BELSOMRA [Concomitant]
     Active Substance: SUVOREXANT
  3. JANUVIA [Concomitant]
     Active Substance: SITAGLIPTIN PHOSPHATE
  4. VESICARE [Concomitant]
     Active Substance: SOLIFENACIN SUCCINATE
  5. SOLU-MEDROL [Suspect]
     Active Substance: METHYLPREDNISOLONE SODIUM SUCCINATE
     Indication: ENDOCRINE OPHTHALMOPATHY
     Dosage: 500 MG, DAILY
     Route: 042
     Dates: start: 20181003, end: 20181005
  6. SOLU-MEDROL [Suspect]
     Active Substance: METHYLPREDNISOLONE SODIUM SUCCINATE
     Dosage: 500 MG, DAILY
     Route: 042
     Dates: start: 20181017, end: 20181019
  7. SOLU-MEDROL [Suspect]
     Active Substance: METHYLPREDNISOLONE SODIUM SUCCINATE
     Dosage: 500 MG, DAILY
     Route: 042
     Dates: start: 20181010, end: 20181012
  8. NEXIUM MUPS [ESOMEPRAZOLE MAGNESIUM] [Concomitant]
  9. BEZAFIBRATE [Concomitant]
     Active Substance: BEZAFIBRATE

REACTIONS (1)
  - Delirium [Unknown]

NARRATIVE: CASE EVENT DATE: 20181009
